FAERS Safety Report 4805444-1 (Version None)
Quarter: 2005Q4

REPORT INFORMATION
  Report Type: 
  Country: None (occurrence: None)
  Receive Date: 20051018
  Receipt Date: 20051003
  Transmission Date: 20060501
  Serious: Yes (Hospitalization)
  Sender: FDA-Public Use
  Company Number: 2005119301

PATIENT
  Age: 82 Year
  Sex: Female

DRUGS (7)
  1. CAMPTOSAR [Suspect]
     Indication: ILL-DEFINED DISORDER
     Dosage: 180 MG/M2 (1 IN 2 WK)
     Dates: start: 20041118
  2. CETUXIMAB (CETUXIMAB) [Suspect]
     Indication: ILL-DEFINED DISORDER
     Dosage: 400 MG/M2 (1 IN 1 D), INTRAVENOUS
     Route: 042
     Dates: start: 20041201, end: 20050509
  3. DOXYCYCLINE [Suspect]
     Indication: ILL-DEFINED DISORDER
     Dates: start: 20050228
  4. DIGOXIN [Concomitant]
  5. NORDAZ (NORDAZEPAM) [Concomitant]
  6. LYTOS (CLODRONATE DISODIUM) [Concomitant]
  7. ACETAMINOPHEN [Concomitant]

REACTIONS (9)
  - DERMATITIS ACNEIFORM [None]
  - EYELID OEDEMA [None]
  - LUNG NEOPLASM [None]
  - METASTASES TO BONE [None]
  - OEDEMA PERIPHERAL [None]
  - PARANEOPLASTIC SYNDROME [None]
  - PHOTOSENSITIVITY REACTION [None]
  - SKIN LESION [None]
  - TOXIC SKIN ERUPTION [None]
